FAERS Safety Report 5027769-X (Version None)
Quarter: 2006Q2

REPORT INFORMATION
  Report Type: 
  Country: None (occurrence: None)
  Receive Date: 20060616
  Receipt Date: 20060609
  Transmission Date: 20061013
  Serious: Yes (Death)
  Sender: FDA-Public Use
  Company Number: GB-BRACCO-BRO-010263

PATIENT
  Sex: Female

DRUGS (2)
  1. NIOPAM [Suspect]
     Indication: ARTERIOVENOUS FISTULA SITE COMPLICATION
     Route: 042
  2. NIOPAM [Suspect]
     Route: 042

REACTIONS (4)
  - CARDIO-RESPIRATORY ARREST [None]
  - CONVULSION [None]
  - NAUSEA [None]
  - VOMITING [None]
